FAERS Safety Report 25959400 (Version 1)
Quarter: 2025Q4

REPORT INFORMATION
  Report Type: Spontaneous
  Country: CN (occurrence: CN)
  Receive Date: 20251025
  Receipt Date: 20251025
  Transmission Date: 20260117
  Serious: Yes (Hospitalization, Other)
  Sender: MSN LABORATORIES PRIVATE LIMITED
  Company Number: CN-MSNLABS-2025MSNLIT03088

PATIENT

DRUGS (2)
  1. CAPECITABINE [Suspect]
     Active Substance: CAPECITABINE
     Indication: Pancreatic carcinoma
     Dosage: 1.5 G ADMINISTERED TWICE DAILY FOR 14 CONSECUTIVE DAYS
     Route: 048
     Dates: start: 20231012
  2. SINTILIMAB [Suspect]
     Active Substance: SINTILIMAB
     Indication: Product used for unknown indication
     Route: 042
     Dates: start: 20231012

REACTIONS (1)
  - Small intestinal obstruction [Not Recovered/Not Resolved]

NARRATIVE: CASE EVENT DATE: 20231108
